FAERS Safety Report 14498264 (Version 2)
Quarter: 2018Q1

REPORT INFORMATION
  Report Type: Spontaneous
  Country: DE (occurrence: DE)
  Receive Date: 20180207
  Receipt Date: 20180214
  Transmission Date: 20180509
  Serious: Yes (Hospitalization, Other)
  Sender: FDA-Public Use
  Company Number: DE-BRISTOL-MYERS SQUIBB COMPANY-BMS-2018-009388

PATIENT
  Age: 83 Year
  Sex: Female

DRUGS (1)
  1. ELIQUIS [Suspect]
     Active Substance: APIXABAN
     Indication: PRODUCT USED FOR UNKNOWN INDICATION
     Dosage: 5 MG, BID
     Route: 048

REACTIONS (12)
  - Vertebral artery occlusion [Unknown]
  - Large intestine polyp [Unknown]
  - Leukocyturia [Unknown]
  - Peripheral venous disease [Unknown]
  - Cerebral ischaemia [Recovering/Resolving]
  - Papilloma [Unknown]
  - Rectal haemorrhage [Unknown]
  - Treatment failure [Unknown]
  - Escherichia infection [Unknown]
  - Lung infiltration [Unknown]
  - Atrial fibrillation [Unknown]
  - Constipation [Unknown]

NARRATIVE: CASE EVENT DATE: 20180103
